FAERS Safety Report 7904432-6 (Version None)
Quarter: 2011Q4

REPORT INFORMATION
  Report Type: 
  Country: None (occurrence: None)
  Receive Date: 20111109
  Receipt Date: 20111102
  Transmission Date: 20120403
  Serious: Yes (Hospitalization, Other)
  Sender: FDA-Public Use
  Company Number: US-PFIZER INC-2011268499

PATIENT
  Age: 7 Year
  Sex: Male

DRUGS (7)
  1. PYRAZINAMIDE [Suspect]
     Indication: TUBERCULOSIS
     Dosage: UNK
  2. CEFTRIAXONE [Concomitant]
  3. PYRIDOXINE [Concomitant]
  4. ISONIAZID [Suspect]
     Indication: TUBERCULOSIS
     Dosage: UNK
  5. ETHAMBUTOL [Suspect]
     Indication: TUBERCULOSIS
     Dosage: UNK
  6. RIFAMPIN [Suspect]
     Indication: TUBERCULOSIS
     Dosage: UNK
  7. FLUCONAZOLE [Concomitant]

REACTIONS (1)
  - ACUTE HEPATIC FAILURE [None]
